FAERS Safety Report 20902202 (Version 1)
Quarter: 2022Q2

REPORT INFORMATION
  Report Type: Spontaneous
  Country: US (occurrence: US)
  Receive Date: 20220601
  Receipt Date: 20220601
  Transmission Date: 20220720
  Serious: Yes (Other)
  Sender: FDA-Public Use
  Company Number: US-BRISTOL-MYERS SQUIBB COMPANY-2022-045984

PATIENT
  Age: 74 Year
  Sex: Male

DRUGS (5)
  1. REVLIMID [Suspect]
     Active Substance: LENALIDOMIDE
     Indication: Plasma cell myeloma
     Dosage: FREQ : DAILY  21 DAYS ON OFF FOR 7 DAYS
     Route: 048
     Dates: start: 20220331, end: 20220512
  2. ZOLOFT [Concomitant]
     Active Substance: SERTRALINE HYDROCHLORIDE
     Indication: Depression
     Route: 065
  3. TORSEMIDE [Concomitant]
     Active Substance: TORSEMIDE
     Indication: Product used for unknown indication
     Route: 065
  4. SPIRONOLACTONE [Concomitant]
     Active Substance: SPIRONOLACTONE
     Indication: Cardiac failure congestive
  5. HYDRAZINE SULFATE [Concomitant]
     Active Substance: HYDRAZINE SULFATE
     Indication: Sleep disorder

REACTIONS (4)
  - Tremor [Unknown]
  - Nausea [Unknown]
  - Stevens-Johnson syndrome [Unknown]
  - Eye pain [Unknown]
